FAERS Safety Report 4354540-4 (Version None)
Quarter: 2004Q2

REPORT INFORMATION
  Report Type: 
  Country: None (occurrence: None)
  Receive Date: 20040506
  Receipt Date: 20040506
  Transmission Date: 20050107
  Serious: Yes (Hospitalization)
  Sender: FDA-Public Use
  Company Number: None

PATIENT
  Age: 54 Year
  Sex: Male
  Weight: 75 kg

DRUGS (8)
  1. INTEGRILIN [Suspect]
     Dosage: 2( 6.8 ML BOLUS )12 ML/HR IV
     Route: 042
     Dates: start: 20040423, end: 20040424
  2. MIDAZOLAM HCL [Concomitant]
  3. NITROGLYCERIN [Concomitant]
  4. CEFAZOLIN [Concomitant]
  5. PLAVIX [Concomitant]
  6. SOLU-MEDROL [Concomitant]
  7. ASPIRIN [Concomitant]
  8. PEPCID [Concomitant]

REACTIONS (1)
  - BLOOD CREATINE PHOSPHOKINASE MB INCREASED [None]
